FAERS Safety Report 9530062 (Version 3)
Quarter: 2013Q3

REPORT INFORMATION
  Report Type: Spontaneous
  Country: DK (occurrence: JP)
  Receive Date: 20130917
  Receipt Date: 20130927
  Transmission Date: 20140515
  Serious: Yes (Other)
  Sender: FDA-Public Use
  Company Number: JP-FRI-1000045958

PATIENT
  Age: 51 Year
  Sex: Male
  Weight: 67 kg

DRUGS (4)
  1. LEXAPRO [Suspect]
     Indication: HYPOAESTHESIA
     Dosage: 10 MG
     Route: 048
     Dates: start: 20130521, end: 20130526
  2. LYRICA [Suspect]
     Indication: HYPOAESTHESIA
     Dosage: 150 MG
     Route: 048
     Dates: start: 201212
  3. METHYCOBAL [Suspect]
     Indication: HYPOAESTHESIA
     Dosage: 3 DF
     Route: 048
     Dates: start: 201212
  4. ANPLAG [Suspect]
     Indication: HYPOAESTHESIA
     Dosage: 3 DF
     Route: 048
     Dates: start: 201212

REACTIONS (8)
  - Thirst [Recovered/Resolved]
  - Decreased appetite [Recovered/Resolved]
  - Nausea [Recovered/Resolved]
  - Depression [Recovered/Resolved]
  - Off label use [Recovered/Resolved]
  - Urine output decreased [Recovered/Resolved]
  - Poor quality sleep [Recovered/Resolved]
  - Vision blurred [Recovered/Resolved]
